FAERS Safety Report 20585326 (Version 5)
Quarter: 2022Q4

REPORT INFORMATION
  Report Type: Spontaneous
  Country: DE (occurrence: DE)
  Receive Date: 20220312
  Receipt Date: 20221226
  Transmission Date: 20230113
  Serious: Yes (Disabling, Other)
  Sender: FDA-Public Use
  Company Number: DE-BRISTOL-MYERS SQUIBB COMPANY-BMS-2021-133637

PATIENT
  Age: 85 Year
  Sex: Male
  Weight: 90 kg

DRUGS (9)
  1. ELIQUIS [Suspect]
     Active Substance: APIXABAN
     Indication: Cerebrovascular accident prophylaxis
     Route: 048
     Dates: start: 2010
  2. ELIQUIS [Suspect]
     Active Substance: APIXABAN
     Route: 048
     Dates: start: 2019
  3. BISOPROLOL [Concomitant]
     Active Substance: BISOPROLOL
     Indication: Hypertension
     Dosage: 1.25 MILLIGRAM, BID
  4. BISOPROLOL [Concomitant]
     Active Substance: BISOPROLOL
     Dosage: 2.5 MILLIGRAM, QD
     Dates: start: 2010, end: 20220201
  5. CANDESARTAN [Concomitant]
     Active Substance: CANDESARTAN
     Indication: Hypertension
     Dosage: 4 MILLIGRAM, QD
  6. CORTISONE [Concomitant]
     Active Substance: CORTISONE
     Indication: Product used for unknown indication
  7. CRATAEGUS LAEVIGATA FLOWERING TOP [Concomitant]
     Active Substance: CRATAEGUS LAEVIGATA FLOWERING TOP
     Indication: Product used for unknown indication
     Dosage: 450 MILLIGRAM, BID
  8. MAGNESIUM ASPARTATE [Concomitant]
     Active Substance: MAGNESIUM ASPARTATE
     Indication: Product used for unknown indication
     Dosage: UNK DAILY
     Dates: start: 2010
  9. MARCUMAR [Concomitant]
     Active Substance: PHENPROCOUMON
     Indication: Product used for unknown indication

REACTIONS (14)
  - Fatigue [Not Recovered/Not Resolved]
  - Vasodilatation [Not Recovered/Not Resolved]
  - Osteoarthritis [Not Recovered/Not Resolved]
  - Peripheral vascular disorder [Not Recovered/Not Resolved]
  - Epistaxis [Recovered/Resolved]
  - Rash [Not Recovered/Not Resolved]
  - Nocturia [Not Recovered/Not Resolved]
  - Micturition urgency [Not Recovered/Not Resolved]
  - Intentional product use issue [Unknown]
  - Dizziness [Not Recovered/Not Resolved]
  - Pruritus [Recovering/Resolving]
  - Acne [Not Recovered/Not Resolved]
  - Pollakiuria [Unknown]
  - Sleep disorder [Unknown]

NARRATIVE: CASE EVENT DATE: 20200101
